FAERS Safety Report 15491425 (Version 2)
Quarter: 2025Q3

REPORT INFORMATION
  Report Type: Spontaneous
  Country: US (occurrence: US)
  Receive Date: 20181012
  Receipt Date: 20250718
  Transmission Date: 20251021
  Serious: Yes (Death, Life-Threatening, Other)
  Sender: AUROBINDO
  Company Number: US-AUROBINDO-AUR-APL-2018-049486

PATIENT
  Age: 64 Year
  Sex: Male

DRUGS (7)
  1. METRONIDAZOLE [Suspect]
     Active Substance: METRONIDAZOLE
     Indication: Enterocolitis bacterial
     Route: 042
  2. MEROPENEM [Suspect]
     Active Substance: MEROPENEM
     Indication: Enterocolitis bacterial
     Route: 042
  3. VANCOMYCIN [Suspect]
     Active Substance: VANCOMYCIN
     Indication: Enterocolitis bacterial
     Route: 065
  4. VANCOMYCIN [Suspect]
     Active Substance: VANCOMYCIN
     Route: 048
  5. VANCOMYCIN [Suspect]
     Active Substance: VANCOMYCIN
     Route: 054
  6. TIGECYCLINE [Suspect]
     Active Substance: TIGECYCLINE
     Indication: Enterocolitis bacterial
     Route: 065
  7. MICAFUNGIN [Suspect]
     Active Substance: MICAFUNGIN SODIUM
     Indication: Enterocolitis bacterial
     Route: 042

REACTIONS (1)
  - Drug ineffective [Fatal]
